FAERS Safety Report 24862104 (Version 1)
Quarter: 2025Q1

REPORT INFORMATION
  Report Type: Report from Study
  Country: US (occurrence: US)
  Receive Date: 20250120
  Receipt Date: 20250120
  Transmission Date: 20250408
  Serious: Yes (Other)
  Sender: CSL BEHRING
  Company Number: US-BEH-2024190241

PATIENT
  Age: 55 Year
  Sex: Female
  Weight: 88.5 kg

DRUGS (3)
  1. HIZENTRA [Suspect]
     Active Substance: HUMAN IMMUNOGLOBULIN G
     Indication: Hypogammaglobulinaemia
     Route: 065
  2. HIZENTRA [Suspect]
     Active Substance: HUMAN IMMUNOGLOBULIN G
     Dosage: 10 G, QW
     Route: 058
     Dates: start: 20240911
  3. HIZENTRA [Suspect]
     Active Substance: HUMAN IMMUNOGLOBULIN G
     Dosage: 10 G, QW
     Route: 058
     Dates: start: 20241224

REACTIONS (7)
  - Pyrexia [Unknown]
  - Oedema peripheral [Unknown]
  - Abdominal distension [Unknown]
  - Retching [Unknown]
  - Muscle spasms [Unknown]
  - Unevaluable event [Unknown]
  - Liver disorder [Unknown]
